FAERS Safety Report 7237608-4 (Version None)
Quarter: 2011Q1

REPORT INFORMATION
  Report Type: 
  Country: None (occurrence: None)
  Receive Date: 20110121
  Receipt Date: 20110113
  Transmission Date: 20110831
  Serious: Yes (Hospitalization, Other)
  Sender: FDA-Public Use
  Company Number: BR-ROCHE-612959

PATIENT
  Sex: Male
  Weight: 80 kg

DRUGS (7)
  1. SULFAMETHOXAZOLE AND TRIMETHOPRIM [Suspect]
     Route: 065
  2. PEGINTERFERON ALFA-2A [Suspect]
     Indication: HEPATITIS C
     Route: 058
     Dates: start: 20071129, end: 20080201
  3. PEGINTERFERON ALFA-2A [Suspect]
     Dosage: DOSAGE LOWERED
     Route: 058
     Dates: start: 20080201, end: 20081123
  4. PEGINTERFERON ALFA-2A [Suspect]
     Route: 058
     Dates: end: 20090101
  5. RIBAVARIN [Suspect]
     Indication: HEPATITIS C
     Dosage: FREQUENCY: 6 UNITS/DAY (2 UNITS EACH IN THE MORNING, AFTERNOON AND NIGHT)
     Route: 048
     Dates: start: 20071101, end: 20081001
  6. CLONAZEPAM [Suspect]
     Indication: INSOMNIA
     Dosage: OTHER INDICATION:CONVULSIONS, CALCIFICATION
     Route: 048
     Dates: start: 19990101
  7. CLONAZEPAM [Suspect]
     Dosage: DOSAGE LOWERED
     Route: 048

REACTIONS (17)
  - ASPARTATE AMINOTRANSFERASE INCREASED [None]
  - CALCINOSIS [None]
  - MYOPATHY [None]
  - LEUKOPENIA [None]
  - IMMUNODEFICIENCY [None]
  - DEPENDENCE [None]
  - HEPATIC PAIN [None]
  - TOXICITY TO VARIOUS AGENTS [None]
  - HEPATITIS C [None]
  - DIZZINESS [None]
  - BLOOD URINE PRESENT [None]
  - PNEUMONIA [None]
  - THROMBOCYTOPENIA [None]
  - WEIGHT DECREASED [None]
  - SKIN EROSION [None]
  - TACHYCARDIA [None]
  - CONVULSION [None]
